FAERS Safety Report 7736732-7 (Version None)
Quarter: 2011Q3

REPORT INFORMATION
  Report Type: 
  Country: None (occurrence: None)
  Receive Date: 20110908
  Receipt Date: 20110826
  Transmission Date: 20111222
  Serious: Yes (Hospitalization)
  Sender: FDA-Public Use
  Company Number: PHHY2011FR62368

PATIENT
  Sex: Male
  Weight: 62 kg

DRUGS (2)
  1. MYCOPHENOLIC ACID [Suspect]
     Indication: RENAL TRANSPLANT
     Dosage: 1440 MG, PER DAY
     Route: 048
     Dates: start: 20070101
  2. MYCOPHENOLIC ACID [Suspect]
     Dosage: 700 MG,DAILY
     Route: 048
     Dates: start: 20080407, end: 20090301

REACTIONS (3)
  - LUNG DISORDER [None]
  - CYTOMEGALOVIRUS SYNDROME [None]
  - LUNG INFECTION [None]
